FAERS Safety Report 5804031-6 (Version None)
Quarter: 2008Q3

REPORT INFORMATION
  Report Type: 
  Country: None (occurrence: None)
  Receive Date: 20080707
  Receipt Date: 20080623
  Transmission Date: 20090109
  Serious: Yes (Other)
  Sender: FDA-Public Use
  Company Number: GXKR2008JP05010

PATIENT

DRUGS (1)
  1. THEOPHYLLINE [Suspect]

REACTIONS (3)
  - ENCEPHALOPATHY [None]
  - FEBRILE CONVULSION [None]
  - STATUS EPILEPTICUS [None]
